FAERS Safety Report 7115305-3 (Version None)
Quarter: 2010Q4

REPORT INFORMATION
  Report Type: 
  Country: None (occurrence: None)
  Receive Date: 20101116
  Receipt Date: 20101116
  Transmission Date: 20110411
  Serious: No
  Sender: FDA-Public Use
  Company Number: None

PATIENT
  Age: 57 Year
  Sex: Male
  Weight: 84 kg

DRUGS (1)
  1. ENALAPRIL MALEATE [Suspect]
     Indication: CORONARY ARTERY DISEASE
     Dosage: 1/2 TAB EVERY DAY PO
     Route: 048
     Dates: start: 20080819, end: 20101108

REACTIONS (2)
  - ANGIOEDEMA [None]
  - LIP SWELLING [None]
